FAERS Safety Report 8951042 (Version 1)
Quarter: 2012Q4

REPORT INFORMATION
  Report Type: 
  Country: US (occurrence: US)
  Receive Date: 20121207
  Receipt Date: 20121207
  Transmission Date: 20130627
  Serious: Yes (Hospitalization, Other)
  Sender: FDA-Public Use
  Company Number: US-PFIZER INC-2012306765

PATIENT
  Sex: Male

DRUGS (2)
  1. VIAGRA [Suspect]
     Dosage: 50 mg, UNK
     Dates: start: 2008
  2. VIAGRA [Suspect]
     Dosage: 100 mg, UNK

REACTIONS (2)
  - Chest pain [Unknown]
  - Corneal disorder [Unknown]
